FAERS Safety Report 6387347-7 (Version None)
Quarter: 2009Q3

REPORT INFORMATION
  Report Type: 
  Country: None (occurrence: None)
  Receive Date: 20090930
  Receipt Date: 20090914
  Transmission Date: 20100115
  Serious: Yes (Death)
  Sender: FDA-Public Use
  Company Number: 2009AL003020

PATIENT
  Age: 86 Year
  Sex: Male
  Weight: 61.6892 kg

DRUGS (31)
  1. DIGOXIN [Suspect]
     Dosage: 0.125MG, PO; 0.25MG, PO
     Route: 048
     Dates: start: 20060216
  2. DIGOXIN [Suspect]
     Dosage: 0.125MG, PO; 0.25MG, PO
     Route: 048
     Dates: start: 20080216
  3. PAROXETINE HCL [Concomitant]
  4. ACCUPRIL [Concomitant]
  5. LIPITOR [Concomitant]
  6. OCUFLOX [Concomitant]
  7. WARFARIN SODIUM [Concomitant]
  8. ACULAR [Concomitant]
  9. PREDNISOLONE [Concomitant]
  10. ALBUTEROL [Concomitant]
  11. FUROSEMIDE [Concomitant]
  12. POTASSIUM CHLORIDE [Concomitant]
  13. ZAROXOLYN [Concomitant]
  14. GLUCOTROL XL [Concomitant]
  15. METFORMIN HCL [Concomitant]
  16. AMOXICILLIN [Concomitant]
  17. MEPHYTON [Concomitant]
  18. PENICILLIN VK [Concomitant]
  19. LOVENOX [Concomitant]
  20. CUTIVATE [Concomitant]
  21. CIPRO [Concomitant]
  22. NEURONTIN [Concomitant]
  23. SANTYL [Concomitant]
  24. AUGMENTIN XR [Concomitant]
  25. GABAPENTIN [Concomitant]
  26. GLIPIZIDE [Concomitant]
  27. FINASTERIDE [Concomitant]
  28. NITROFURANTOIN-MACROM [Concomitant]
  29. LANTUS [Concomitant]
  30. NOVOLOG [Concomitant]
  31. PROSCAR [Concomitant]

REACTIONS (25)
  - ANAEMIA [None]
  - BLOOD GLUCOSE INCREASED [None]
  - BLOOD POTASSIUM DECREASED [None]
  - BRAIN NATRIURETIC PEPTIDE INCREASED [None]
  - BUNDLE BRANCH BLOCK RIGHT [None]
  - CARDIAC FAILURE CONGESTIVE [None]
  - CARDIO-RESPIRATORY ARREST [None]
  - CONDITION AGGRAVATED [None]
  - DEMENTIA [None]
  - DYSARTHRIA [None]
  - DYSPHAGIA [None]
  - ECONOMIC PROBLEM [None]
  - HAEMATURIA [None]
  - HYPERSOMNIA [None]
  - INTERNATIONAL NORMALISED RATIO INCREASED [None]
  - LETHARGY [None]
  - MENTAL STATUS CHANGES [None]
  - MULTIPLE INJURIES [None]
  - PNEUMONIA [None]
  - PROSTATOMEGALY [None]
  - SEPSIS [None]
  - SURGERY [None]
  - UNRESPONSIVE TO STIMULI [None]
  - URINARY TRACT INFECTION [None]
  - VENTRICULAR FIBRILLATION [None]
